FAERS Safety Report 13186750 (Version 1)
Quarter: 2017Q1

REPORT INFORMATION
  Report Type: Spontaneous
  Country: US (occurrence: US)
  Receive Date: 20170205
  Receipt Date: 20170205
  Transmission Date: 20170428
  Serious: No
  Sender: FDA-Public Use
  Company Number: US-AMGEN-USASP2017017836

PATIENT
  Age: 0 Day
  Sex: Male
  Weight: 1.88 kg

DRUGS (5)
  1. URSODIOL. [Concomitant]
     Active Substance: URSODIOL
     Indication: EXPOSURE DURING PREGNANCY
     Dosage: 300 MG, TID
     Route: 064
     Dates: start: 201608, end: 201611
  2. VITAMIN D3 [Concomitant]
     Active Substance: CHOLECALCIFEROL
     Indication: EXPOSURE DURING PREGNANCY
     Dosage: 3000 IU QD
     Route: 064
     Dates: start: 201603
  3. PREDNISONE. [Concomitant]
     Active Substance: PREDNISONE
     Indication: EXPOSURE DURING PREGNANCY
     Dosage: 10 MG, QD
     Route: 064
  4. PLAQUENIL [Concomitant]
     Active Substance: HYDROXYCHLOROQUINE SULFATE
     Indication: EXPOSURE DURING PREGNANCY
     Dosage: 200 MG, BID
     Route: 064
     Dates: start: 201603
  5. ENBREL [Suspect]
     Active Substance: ETANERCEPT
     Indication: EXPOSURE DURING PREGNANCY
     Dosage: UNK
     Route: 064

REACTIONS (2)
  - Premature baby [Unknown]
  - Low birth weight baby [Unknown]

NARRATIVE: CASE EVENT DATE: 20161114
